FAERS Safety Report 4916519-0 (Version None)
Quarter: 2006Q1

REPORT INFORMATION
  Report Type: 
  Country: None (occurrence: None)
  Receive Date: 20060220
  Receipt Date: 20041206
  Transmission Date: 20060701
  Serious: Yes (Hospitalization)
  Sender: FDA-Public Use
  Company Number: PHRM2004FR03628

PATIENT
  Age: 41 Year
  Sex: Female

DRUGS (5)
  1. VOLTAREN [Suspect]
     Route: 048
     Dates: start: 20040801, end: 20040906
  2. ALTIM [Suspect]
     Route: 008
     Dates: start: 20040830, end: 20040830
  3. CELESTENE [Suspect]
     Route: 048
     Dates: start: 20040801, end: 20040830
  4. EUPANTOL [Suspect]
     Route: 048
     Dates: start: 20040801, end: 20040906
  5. LAMALINE [Suspect]
     Route: 054
     Dates: start: 20040801, end: 20040815

REACTIONS (17)
  - ANTINUCLEAR ANTIBODY POSITIVE [None]
  - CONJUNCTIVAL DISORDER [None]
  - EOSINOPHIL COUNT INCREASED [None]
  - GENITAL PRURITUS FEMALE [None]
  - HYPERTHERMIA [None]
  - INJECTION SITE PRURITUS [None]
  - INJECTION SITE URTICARIA [None]
  - NIKOLSKY'S SIGN [None]
  - POLYMORPHIC LIGHT ERUPTION [None]
  - PRURITUS [None]
  - RASH MACULAR [None]
  - SKIN BURNING SENSATION [None]
  - SKIN EXFOLIATION [None]
  - SKIN LESION [None]
  - STEVENS-JOHNSON SYNDROME [None]
  - TOXIC SKIN ERUPTION [None]
  - WHITE BLOOD CELL COUNT INCREASED [None]
